FAERS Safety Report 4463220-6 (Version None)
Quarter: 2004Q3

REPORT INFORMATION
  Report Type: 
  Country: None (occurrence: None)
  Receive Date: 20040930
  Receipt Date: 20040910
  Transmission Date: 20050211
  Serious: Yes (Other)
  Sender: FDA-Public Use
  Company Number: PHBS2004JP12143

PATIENT
  Sex: Male

DRUGS (1)
  1. VOLTAREN [Suspect]
     Dosage: 15 MG
     Route: 062
     Dates: start: 20040101, end: 20040101

REACTIONS (9)
  - APPLICATION SITE DERMATITIS [None]
  - APPLICATION SITE DESQUAMATION [None]
  - APPLICATION SITE DISCHARGE [None]
  - APPLICATION SITE ERYTHEMA [None]
  - APPLICATION SITE INFLAMMATION [None]
  - APPLICATION SITE PRURITUS [None]
  - APPLICATION SITE WARMTH [None]
  - DIFFICULTY IN WALKING [None]
  - REACTION TO DRUG EXCIPIENT [None]
